FAERS Safety Report 9578771 (Version 1)
Quarter: 2013Q4

REPORT INFORMATION
  Report Type: Spontaneous
  Country: US (occurrence: US)
  Receive Date: 20131001
  Receipt Date: 20131001
  Transmission Date: 20140711
  Serious: No
  Sender: FDA-Public Use
  Company Number: US-AMGEN-USASP2013014903

PATIENT
  Age: 53 Year
  Sex: Female
  Weight: 99.77 kg

DRUGS (12)
  1. ENBREL [Suspect]
     Indication: PRODUCT USED FOR UNKNOWN INDICATION
     Dosage: 50 MG, ONCE A WEEK
     Route: 058
  2. APAP [Concomitant]
     Dosage: 5 - 500 MG, UNK
  3. ALLOPURINOL [Concomitant]
     Dosage: 300 MG, UNK
  4. EFFEXOR [Concomitant]
     Dosage: 37.5 MG, UNK
  5. LORAZEPAM [Concomitant]
     Dosage: 1 MG, UNK
  6. FOLIC ACID [Concomitant]
     Dosage: 1 MG, UNK
  7. ATENOLOL [Concomitant]
     Dosage: 50 MG, UNK
  8. LISINOPRIL HCTZ [Concomitant]
     Dosage: 20-25 MG, UNK
  9. METHOTREXATE [Concomitant]
     Dosage: 2.5 MG, UNK
  10. VITAMIN D                          /00107901/ [Concomitant]
     Dosage: 1000 UNIT, UNK
  11. VITAMIN C                          /00008001/ [Concomitant]
     Dosage: 500 MG, UNK
  12. TYLENOL                            /00020001/ [Concomitant]
     Dosage: 500 MG, UNK

REACTIONS (1)
  - Abdominal discomfort [Unknown]
